FAERS Safety Report 8953188 (Version 2)
Quarter: 2013Q3

REPORT INFORMATION
  Report Type: Spontaneous
  Country: US (occurrence: US)
  Receive Date: 20121206
  Receipt Date: 20130827
  Transmission Date: 20140515
  Serious: Yes (Other)
  Sender: FDA-Public Use
  Company Number: US-AMGEN-USASP2012077471

PATIENT
  Age: 54 Year
  Sex: Female

DRUGS (3)
  1. ENBREL [Suspect]
     Indication: RHEUMATOID ARTHRITIS
     Dosage: 50 MG, QWK
     Route: 065
     Dates: start: 20120316
  2. ENBREL [Suspect]
     Dosage: UNK
     Route: 065
  3. SULFASALAZINE [Concomitant]
     Dosage: 500 MG, TWICE DAILY
     Dates: start: 201207

REACTIONS (10)
  - Depression [Not Recovered/Not Resolved]
  - Musculoskeletal stiffness [Not Recovered/Not Resolved]
  - Joint swelling [Not Recovered/Not Resolved]
  - Local swelling [Not Recovered/Not Resolved]
  - Nausea [Recovered/Resolved]
  - Pain [Recovered/Resolved]
  - Muscular weakness [Not Recovered/Not Resolved]
  - Weight increased [Not Recovered/Not Resolved]
  - Menopausal symptoms [Not Recovered/Not Resolved]
  - Memory impairment [Not Recovered/Not Resolved]
